FAERS Safety Report 21921079 (Version 1)
Quarter: 2023Q1

REPORT INFORMATION
  Report Type: Spontaneous
  Country: US (occurrence: US)
  Receive Date: 20230127
  Receipt Date: 20230127
  Transmission Date: 20230418
  Serious: Yes (Other)
  Sender: FDA-Public Use
  Company Number: US-ALXN-A202300843

PATIENT
  Age: 9 Year
  Sex: Male

DRUGS (2)
  1. SOLIRIS [Suspect]
     Active Substance: ECULIZUMAB
     Indication: Thrombotic microangiopathy
     Dosage: UNK
     Route: 065
  2. SOLIRIS [Suspect]
     Active Substance: ECULIZUMAB
     Indication: Off label use

REACTIONS (6)
  - Urethral obstruction [Unknown]
  - Polyp [Unknown]
  - Mucosal inflammation [Unknown]
  - Hypervolaemia [Unknown]
  - Off label use [Unknown]
  - Haematuria [Recovered/Resolved]
